FAERS Safety Report 23909172 (Version 1)
Quarter: 2024Q2

REPORT INFORMATION
  Report Type: Spontaneous
  Country: US (occurrence: None)
  Receive Date: 20240525
  Receipt Date: 20240525
  Transmission Date: 20240715
  Serious: Yes (Hospitalization)
  Sender: FDA-Public Use
  Company Number: None

PATIENT
  Age: 63 Year
  Sex: Female
  Weight: 76.5 kg

DRUGS (5)
  1. REPATHA [Suspect]
     Active Substance: EVOLOCUMAB
     Indication: Hyperlipidaemia
     Dosage: 420 MG MONTHLY SUBCUTANEOUS
     Route: 058
     Dates: start: 20171112
  2. ENVARSUS XR [Suspect]
     Active Substance: TACROLIMUS
     Indication: Prophylaxis against transplant rejection
     Dosage: 1 MG DAILY ORAL
     Route: 048
     Dates: start: 20180624
  3. citalopram 20mg tab [Concomitant]
     Dates: start: 20230116
  4. ezetemide 10mg tabs [Concomitant]
     Dates: start: 20221209
  5. JARDIANCE [Concomitant]
     Active Substance: EMPAGLIFLOZIN
     Dates: start: 20221209

REACTIONS (1)
  - Skin infection [None]

NARRATIVE: CASE EVENT DATE: 20240518
